FAERS Safety Report 10527599 (Version 1)
Quarter: 2014Q4

REPORT INFORMATION
  Report Type: Spontaneous
  Country: US (occurrence: None)
  Receive Date: 20141016
  Receipt Date: 20141016
  Transmission Date: 20150528
  Serious: No
  Sender: FDA-Public Use
  Company Number: None

PATIENT
  Age: 40 Year
  Sex: Male
  Weight: 85.73 kg

DRUGS (1)
  1. HYDROXYZINE PAMOATE. [Suspect]
     Active Substance: HYDROXYZINE PAMOATE
     Indication: MENTAL IMPAIRMENT
     Route: 048
     Dates: start: 20140926, end: 20141010

REACTIONS (1)
  - Chest pain [None]

NARRATIVE: CASE EVENT DATE: 20141007
